FAERS Safety Report 8580692 (Version 3)
Quarter: 2013Q4

REPORT INFORMATION
  Report Type: Spontaneous
  Country: CA (occurrence: CA)
  Receive Date: 20120525
  Receipt Date: 20131217
  Transmission Date: 20140711
  Serious: Yes (Other)
  Sender: FDA-Public Use
  Company Number: CA-ROCHE-1054297

PATIENT
  Age: 55 Year
  Sex: Male

DRUGS (8)
  1. RITUXAN [Suspect]
     Indication: GRANULOMATOSIS WITH POLYANGIITIS
     Route: 042
     Dates: start: 20120320, end: 20120405
  2. CELLCEPT [Suspect]
     Indication: GRANULOMATOSIS WITH POLYANGIITIS
     Route: 048
     Dates: start: 20110921
  3. CLOPIDOGREL [Concomitant]
     Indication: UNEVALUABLE EVENT
     Dosage: INDICATION: HEART (NOS)
     Route: 048
  4. ACETAZOLAMIDE [Concomitant]
     Route: 048
  5. ASA [Concomitant]
     Indication: UNEVALUABLE EVENT
     Dosage: INDICATION: BLOOD (NOS)
     Route: 048
  6. PREDNISONE [Concomitant]
     Indication: BENIGN INTRACRANIAL HYPERTENSION
     Dosage: INDICATION:
     Route: 048
  7. RABEPRAZOLE [Concomitant]
     Indication: GASTRIC DISORDER
     Dosage: INDICATION: STOMACH (NOS)
     Route: 048
  8. CRESTOR [Concomitant]
     Indication: BLOOD CHOLESTEROL INCREASED
     Route: 048

REACTIONS (5)
  - Convulsion [Not Recovered/Not Resolved]
  - Condition aggravated [Not Recovered/Not Resolved]
  - Headache [Recovered/Resolved]
  - Disturbance in attention [Unknown]
  - Paraesthesia [Unknown]
